FAERS Safety Report 6535790-5 (Version None)
Quarter: 2010Q1

REPORT INFORMATION
  Report Type: 
  Country: None (occurrence: None)
  Receive Date: 20100106
  Receipt Date: 20091221
  Transmission Date: 20100710
  Serious: Yes (Disabling)
  Sender: FDA-Public Use
  Company Number: WAES 0912NOR00201

PATIENT
  Age: 71 Year
  Sex: Male

DRUGS (6)
  1. FOSAMAX [Suspect]
     Indication: OSTEOPOROSIS
     Dosage: 70 MG/WKY, PO
     Route: 048
     Dates: start: 20020101, end: 20060101
  2. TAB ALENDRONIC ACID [Suspect]
     Indication: OSTEOPOROSIS
     Dosage: 70 MG/WKY, PO
     Route: 048
     Dates: start: 20060101, end: 20070501
  3. METOPROLOL TARTRATE [Concomitant]
  4. PREDNISOLONE [Concomitant]
  5. TERIPARATIDE [Concomitant]
  6. WARFARIN SODIUM [Concomitant]

REACTIONS (3)
  - HYPOAESTHESIA ORAL [None]
  - OSTEONECROSIS [None]
  - PAIN IN JAW [None]
